FAERS Safety Report 5035096-X (Version None)
Quarter: 2006Q2

REPORT INFORMATION
  Report Type: 
  Country: None (occurrence: None)
  Receive Date: 20060519
  Receipt Date: 20060131
  Transmission Date: 20061013
  Serious: No
  Sender: FDA-Public Use
  Company Number: TPA2006A00186

PATIENT
  Age: 31 Year
  Sex: Male
  Weight: 58.9676 kg

DRUGS (2)
  1. ROZEREM [Suspect]
     Indication: MIDDLE INSOMNIA
     Dosage: 8 MG, QHS, PER ORAL
     Route: 048
     Dates: start: 20060120
  2. EFFEXOR (VENLAFAXINE HYDROCHLORIDE) (150 MILLIGRAM) [Concomitant]

REACTIONS (3)
  - ENERGY INCREASED [None]
  - HYPERHIDROSIS [None]
  - MIDDLE INSOMNIA [None]
